FAERS Safety Report 25617468 (Version 1)
Quarter: 2025Q3

REPORT INFORMATION
  Report Type: Spontaneous
  Country: CN (occurrence: CN)
  Receive Date: 20250729
  Receipt Date: 20250729
  Transmission Date: 20251020
  Serious: Yes (Hospitalization, Other)
  Sender: BAYER HEALTHCARE PHARMACEUTICALS INC.
  Company Number: CN-BAYER-2025A100849

PATIENT
  Age: 97 Year
  Sex: Female
  Weight: 50 kg

DRUGS (1)
  1. ULTRAVIST [Suspect]
     Active Substance: IOPROMIDE
     Indication: Computerised tomogram
     Route: 042
     Dates: start: 20250724, end: 20250724

REACTIONS (6)
  - Contrast encephalopathy [Recovering/Resolving]
  - Dysphoria [Recovering/Resolving]
  - Hypophagia [None]
  - Delirium [Recovering/Resolving]
  - Sleep disorder [Recovering/Resolving]
  - Disorganised speech [Recovering/Resolving]

NARRATIVE: CASE EVENT DATE: 20250725
